FAERS Safety Report 14690526 (Version 1)
Quarter: 2018Q1

REPORT INFORMATION
  Report Type: Spontaneous
  Country: JP (occurrence: JP)
  Receive Date: 20180328
  Receipt Date: 20180328
  Transmission Date: 20180509
  Serious: Yes (Other)
  Sender: FDA-Public Use
  Company Number: JP-PFIZER INC-2018121119

PATIENT
  Sex: Female

DRUGS (2)
  1. CABERGOLINE. [Suspect]
     Active Substance: CABERGOLINE
     Indication: HYPERPROLACTINAEMIA
     Dosage: UNK
     Route: 048
  2. CABERGOLINE. [Suspect]
     Active Substance: CABERGOLINE
     Indication: OVULATION DISORDER

REACTIONS (1)
  - Uterine leiomyoma [Unknown]
